FAERS Safety Report 10228048 (Version 1)
Quarter: 2014Q2

REPORT INFORMATION
  Report Type: Spontaneous
  Country: GB (occurrence: GB)
  Receive Date: 20140610
  Receipt Date: 20140610
  Transmission Date: 20141212
  Serious: Yes (Other)
  Sender: FDA-Public Use
  Company Number: GB-PFIZER INC-2014156359

PATIENT
  Age: 50 Year
  Sex: Female
  Weight: 104 kg

DRUGS (9)
  1. LYRICA [Suspect]
     Indication: PAIN
     Dosage: 150 MG, 1X/DAY
     Route: 048
     Dates: start: 20140224, end: 20140420
  2. BEECHAMS POWDERS [Concomitant]
     Dosage: UNK
  3. BUSCOPAN [Concomitant]
     Dosage: UNK
  4. CYCLIZINE [Concomitant]
     Dosage: UNK
  5. EFEXOR XR [Concomitant]
     Dosage: UNK
  6. LANSOPRAZOLE [Concomitant]
     Dosage: UNK
  7. LORATADINE [Concomitant]
     Dosage: UNK
  8. NAPROXEN [Concomitant]
     Dosage: UNK
  9. TYLEX [Concomitant]
     Dosage: UNK

REACTIONS (3)
  - Weight increased [Not Recovered/Not Resolved]
  - Palpitations [Recovering/Resolving]
  - Food craving [Unknown]
